FAERS Safety Report 15414502 (Version 2)
Quarter: 2018Q4

REPORT INFORMATION
  Report Type: Report from Study
  Country: US (occurrence: US)
  Receive Date: 20180921
  Receipt Date: 20181017
  Transmission Date: 20190204
  Serious: Yes (Hospitalization)
  Sender: FDA-Public Use
  Company Number: US-ASTRAZENECA-2018SF00125

PATIENT
  Age: 22584 Day
  Sex: Female
  Weight: 57.6 kg

DRUGS (18)
  1. ABRAXANE [Suspect]
     Active Substance: PACLITAXEL
     Indication: BREAST CANCER
     Dosage: EVERY WEEK
     Route: 042
     Dates: start: 20180727, end: 20180806
  2. MVI [Concomitant]
     Active Substance: VITAMINS
     Route: 048
  3. TRIAMETERENE-HYDROCHOROTHIAZIDE [Concomitant]
     Dosage: 37.5-25 MG DAILY
     Route: 048
  4. PREDNISONE. [Concomitant]
     Active Substance: PREDNISONE
     Dosage: 24-4 MG QD
     Route: 048
  5. NALOXEGOL [Concomitant]
     Active Substance: NALOXEGOL
     Dosage: PRN
     Route: 048
  6. ASA [Concomitant]
     Active Substance: ASPIRIN
     Route: 048
  7. CRESTOR [Concomitant]
     Active Substance: ROSUVASTATIN CALCIUM
     Dosage: 5 MG NIGHTLY
     Route: 048
  8. SENNA [Concomitant]
     Active Substance: SENNA LEAF\SENNOSIDES\SENNOSIDES A AND B
     Dosage: 1 TAB AS REQUIRED
     Route: 048
  9. OXYCODONE [Concomitant]
     Active Substance: OXYCODONE
     Route: 065
  10. FLUTICASONE. [Concomitant]
     Active Substance: FLUTICASONE
     Dosage: 2 PUFF INHALATION DAILY
     Route: 065
  11. MEDI4736 [Suspect]
     Active Substance: DURVALUMAB
     Indication: BREAST CANCER
     Dosage: EVERY TWO WEEKS
     Route: 042
     Dates: start: 20180727
  12. LYRICA [Concomitant]
     Active Substance: PREGABALIN
     Route: 048
  13. POTASSIUM CHLORIDE. [Concomitant]
     Active Substance: POTASSIUM CHLORIDE
     Route: 048
  14. METFORMIN [Concomitant]
     Active Substance: METFORMIN HYDROCHLORIDE
     Route: 048
  15. COLCHICINE. [Concomitant]
     Active Substance: COLCHICINE
     Indication: GOUT
     Dosage: 2 TAB ONCE
     Route: 048
  16. MIRALAX [Concomitant]
     Active Substance: POLYETHYLENE GLYCOL 3350
     Dosage: PRN
     Route: 048
  17. CALCIUM CITRATE [Concomitant]
     Active Substance: CALCIUM CITRATE
     Route: 048
  18. INDOMETHACIN. [Concomitant]
     Active Substance: INDOMETHACIN
     Dosage: 4 DAYS
     Route: 048

REACTIONS (2)
  - Miller Fisher syndrome [Unknown]
  - Escherichia urinary tract infection [Unknown]

NARRATIVE: CASE EVENT DATE: 20180805
